FAERS Safety Report 11985262 (Version 1)
Quarter: 2016Q1

REPORT INFORMATION
  Report Type: Spontaneous
  Country: US (occurrence: US)
  Receive Date: 20160201
  Receipt Date: 20160201
  Transmission Date: 20160526
  Serious: No
  Sender: FDA-Public Use
  Company Number: US-ACTELION PHARMACEUTICALS US, INC.-A-US2016-130398

PATIENT
  Age: 72 Year
  Sex: Male

DRUGS (11)
  1. CARBIDOPA AND LEVODOPA [Concomitant]
     Active Substance: CARBIDOPA\LEVODOPA
  2. AZOPT [Concomitant]
     Active Substance: BRINZOLAMIDE
  3. ARTIFICIAL TEARS [Concomitant]
     Active Substance: GLYCERIN\HYPROMELLOSES\POLYETHYLENE GLYCOL 400
  4. MYRBETRIQ [Concomitant]
     Active Substance: MIRABEGRON
  5. IRON [Concomitant]
     Active Substance: IRON
  6. VALCHLOR [Suspect]
     Active Substance: MECHLORETHAMINE
     Indication: MYCOSIS FUNGOIDES
     Dosage: UNK, 3X/WEEK
     Route: 061
     Dates: start: 20151021
  7. XALATAN [Concomitant]
     Active Substance: LATANOPROST
  8. TRIAMCINOLONE ACETONIDE. [Concomitant]
     Active Substance: TRIAMCINOLONE ACETONIDE
  9. MULTIVITAMIN [Concomitant]
     Active Substance: VITAMINS
  10. SEROQUEL [Concomitant]
     Active Substance: QUETIAPINE FUMARATE
  11. SENOKOT [Concomitant]
     Active Substance: SENNOSIDES

REACTIONS (1)
  - Drug ineffective [Not Recovered/Not Resolved]
